FAERS Safety Report 9299319 (Version 1)
Quarter: 2013Q2

REPORT INFORMATION
  Report Type: Spontaneous
  Country: CH (occurrence: CH)
  Receive Date: 20130520
  Receipt Date: 20130520
  Transmission Date: 20140414
  Serious: Yes (Other)
  Sender: FDA-Public Use
  Company Number: PHHY2013CH050039

PATIENT
  Sex: Male

DRUGS (3)
  1. AMLODIPINE SANDOZ [Suspect]
     Indication: BLOOD PRESSURE INCREASED
     Dosage: 10 MG, QD
     Route: 048
  2. ATORVASTATIN SANDOZ [Interacting]
     Indication: BLOOD CHOLESTEROL INCREASED
     Dosage: 80 MG, QD
     Route: 048
  3. ALLOPUR [Concomitant]
     Indication: BLOOD UREA
     Dosage: 1 DF, QD

REACTIONS (1)
  - Local swelling [Recovering/Resolving]
